FAERS Safety Report 11676864 (Version 3)
Quarter: 2015Q4

REPORT INFORMATION
  Report Type: Spontaneous
  Country: HK (occurrence: HK)
  Receive Date: 20151028
  Receipt Date: 20151109
  Transmission Date: 20160304
  Serious: Yes (Death, Other)
  Sender: FDA-Public Use
  Company Number: HK-ASTRAZENECA-2015SF02746

PATIENT
  Age: 82 Year
  Sex: Female
  Weight: 43.8 kg

DRUGS (5)
  1. TARCEVA [Concomitant]
     Active Substance: ERLOTINIB HYDROCHLORIDE
     Dates: start: 20140919
  2. IRESSA [Suspect]
     Active Substance: GEFITINIB
     Route: 048
     Dates: start: 20130530
  3. TAGRISSO [Suspect]
     Active Substance: OSIMERTINIB
     Route: 048
  4. ERBITUX [Concomitant]
     Active Substance: CETUXIMAB
     Dosage: EVERY TWO WEEKS
     Dates: start: 20150713
  5. IRESSA [Suspect]
     Active Substance: GEFITINIB
     Dosage: HIGHER DOSE
     Route: 048
     Dates: start: 20141030

REACTIONS (8)
  - Vomiting [Unknown]
  - Pneumonia aspiration [Fatal]
  - Respiratory failure [Fatal]
  - Disease progression [Unknown]
  - Weight decreased [Unknown]
  - Dyspnoea [Unknown]
  - Pleural effusion [Fatal]
  - Metastases to lymph nodes [Unknown]

NARRATIVE: CASE EVENT DATE: 20151019
